FAERS Safety Report 4836019-6 (Version None)
Quarter: 2005Q4

REPORT INFORMATION
  Report Type: 
  Country: None (occurrence: None)
  Receive Date: 20051123
  Receipt Date: 20051122
  Transmission Date: 20060501
  Serious: Yes (Death)
  Sender: FDA-Public Use
  Company Number: 2005UW17773

PATIENT
  Sex: Female

DRUGS (5)
  1. SEROQUEL [Suspect]
     Route: 048
  2. ZOLOFT [Concomitant]
  3. ATIVAN [Concomitant]
  4. BUSPAR [Concomitant]
  5. EFFEXOR [Concomitant]

REACTIONS (1)
  - DEATH [None]
